FAERS Safety Report 9455700 (Version 1)
Quarter: 2013Q3

REPORT INFORMATION
  Report Type: Spontaneous
  Country: ES (occurrence: ES)
  Receive Date: 20130813
  Receipt Date: 20130813
  Transmission Date: 20140515
  Serious: Yes (Other)
  Sender: FDA-Public Use
  Company Number: ES-UCBSA-094809

PATIENT
  Age: 42 Year
  Sex: Female

DRUGS (3)
  1. VIMPAT [Suspect]
     Indication: EPILEPSY
     Dosage: 100/100/150 MG
     Route: 048
     Dates: start: 20130724
  2. VIMPAT [Suspect]
     Indication: EPILEPSY
     Dosage: 100/150/150 MG
     Route: 048
     Dates: start: 2010, end: 20130723
  3. TRILEPTAL [Concomitant]
     Indication: EPILEPSY
     Route: 048

REACTIONS (2)
  - Abortion induced [Unknown]
  - Pregnancy [Recovered/Resolved]
